FAERS Safety Report 22226361 (Version 2)
Quarter: 2023Q2

REPORT INFORMATION
  Report Type: Spontaneous
  Country: US (occurrence: None)
  Receive Date: 20230419
  Receipt Date: 20230505
  Transmission Date: 20230722
  Serious: Yes (Other)
  Sender: FDA-Public Use
  Company Number: US-ROCHE-3329944

PATIENT
  Age: 69 Year
  Sex: Female

DRUGS (6)
  1. PERJETA [Suspect]
     Active Substance: PERTUZUMAB
     Indication: HER2 positive breast cancer
     Dosage: INITIAL DOSE, FOLLOWED BY 420MG
     Route: 042
     Dates: start: 201409, end: 20150101
  2. HERCEPTIN [Suspect]
     Active Substance: TRASTUZUMAB
     Indication: HER2 positive breast cancer
     Route: 041
     Dates: start: 20140901, end: 20150901
  3. TAXOTERE [Concomitant]
     Active Substance: DOCETAXEL
     Indication: HER2 positive breast cancer
     Route: 042
     Dates: start: 20140901, end: 20150101
  4. CARBOPLATIN [Concomitant]
     Active Substance: CARBOPLATIN
     Indication: HER2 positive breast cancer
     Route: 042
     Dates: start: 20140901, end: 20150101
  5. ZOFRAN [Concomitant]
     Active Substance: ONDANSETRON HYDROCHLORIDE
     Indication: Nausea
     Route: 048
  6. OTC MEDICATION (UNK INGREDIENTS) [Concomitant]
     Indication: Diarrhoea
     Route: 048

REACTIONS (5)
  - Alopecia [Recovered/Resolved]
  - Nausea [Recovered/Resolved]
  - Haemorrhoids [Recovered/Resolved]
  - Weight decreased [Recovered/Resolved]
  - Immune thrombocytopenia [Unknown]

NARRATIVE: CASE EVENT DATE: 20140901
